FAERS Safety Report 8067212 (Version 2)
Quarter: 2018Q3

REPORT INFORMATION
  Report Type: Spontaneous
  Country: FR (occurrence: FR)
  Receive Date: 20110803
  Receipt Date: 20180910
  Transmission Date: 20181010
  Serious: Yes (Hospitalization)
  Sender: FDA-Public Use
  Company Number: FR-PFIZER INC-2011173117

PATIENT
  Age: 73 Year
  Sex: Female

DRUGS (15)
  1. KARDEGIC [Concomitant]
     Active Substance: ASPIRIN DL-LYSINE
  2. DOMPERIDONE [Concomitant]
     Active Substance: DOMPERIDONE
  3. LANSOYL [Concomitant]
     Active Substance: MINERAL OIL
  4. ACUPAN [Concomitant]
     Active Substance: NEFOPAM HYDROCHLORIDE
  5. OXYNORM [Concomitant]
     Active Substance: OXYCODONE HYDROCHLORIDE
  6. AUGMENTIN [Suspect]
     Active Substance: AMOXICILLIN\CLAVULANATE POTASSIUM
     Indication: ABSCESS
     Dosage: 1 G, 3X/DAY
     Route: 048
     Dates: start: 20110509, end: 20110701
  7. FORLAX [Concomitant]
     Active Substance: POLYETHYLENE GLYCOL 4000
  8. DOLIPRANE [Concomitant]
     Active Substance: ACETAMINOPHEN
  9. LYRICA [Suspect]
     Active Substance: PREGABALIN
     Dosage: 100 MG, 2X/DAY
     Dates: start: 20110315, end: 20110628
  10. LASILIX [Concomitant]
     Active Substance: FUROSEMIDE
  11. CALCIPARINE [Concomitant]
     Active Substance: HEPARIN CALCIUM
  12. INEXIUM [Concomitant]
     Active Substance: ESOMEPRAZOLE
  13. HUMALOG [Concomitant]
     Active Substance: INSULIN LISPRO
  14. TAHOR [Concomitant]
     Active Substance: ATORVASTATIN CALCIUM
  15. LANTUS [Concomitant]
     Active Substance: INSULIN GLARGINE

REACTIONS (4)
  - Encephalopathy [Recovered/Resolved]
  - Somnolence [Recovered/Resolved]
  - Altered state of consciousness [Recovered/Resolved]
  - Confusional state [Recovered/Resolved]

NARRATIVE: CASE EVENT DATE: 20110628
